FAERS Safety Report 16810614 (Version 3)
Quarter: 2019Q4

REPORT INFORMATION
  Report Type: Spontaneous
  Country: US (occurrence: US)
  Receive Date: 20190916
  Receipt Date: 20191016
  Transmission Date: 20200122
  Serious: No
  Sender: FDA-Public Use
  Company Number: US-AMGEN-USASP2019149494

PATIENT
  Age: 48 Year
  Sex: Female
  Weight: 108.21 kg

DRUGS (2)
  1. NEULASTA [Suspect]
     Active Substance: PEGFILGRASTIM
     Indication: PRODUCT USED FOR UNKNOWN INDICATION
     Dosage: UNK
     Route: 065
     Dates: start: 20190802, end: 20190901
  2. NEULASTA [Suspect]
     Active Substance: PEGFILGRASTIM
     Dosage: UNK
     Route: 065
     Dates: start: 20190802, end: 20190901

REACTIONS (3)
  - Wrong technique in product usage process [Unknown]
  - Accidental exposure to product [Unknown]
  - Device use error [Unknown]

NARRATIVE: CASE EVENT DATE: 20190831
